FAERS Safety Report 9974371 (Version 1)
Quarter: 2014Q1

REPORT INFORMATION
  Report Type: Report from Study
  Country: US (occurrence: US)
  Receive Date: 20140306
  Receipt Date: 20140306
  Transmission Date: 20141002
  Serious: No
  Sender: FDA-Public Use
  Company Number: US-ABBVIE-13P-163-1156955-00

PATIENT
  Age: 60 Year
  Sex: Male
  Weight: 79.9 kg

DRUGS (6)
  1. HUMIRA [Suspect]
     Indication: CROHN^S DISEASE
     Dosage: LOADING DOSE
     Dates: start: 20130909, end: 20130909
  2. HUMIRA [Suspect]
     Dosage: SECOND DOSE
     Dates: start: 20130924, end: 20130924
  3. HUMIRA [Suspect]
     Dates: start: 20131008
  4. PENTASA [Concomitant]
     Indication: CROHN^S DISEASE
  5. COD LIVER OIL [Concomitant]
     Indication: NUTRITIONAL SUPPLEMENTATION
  6. VITAMIN D3 [Concomitant]
     Indication: VITAMIN SUPPLEMENTATION

REACTIONS (5)
  - Arthralgia [Not Recovered/Not Resolved]
  - Arthralgia [Not Recovered/Not Resolved]
  - Drug ineffective [Not Recovered/Not Resolved]
  - Abdominal pain [Not Recovered/Not Resolved]
  - Frequent bowel movements [Not Recovered/Not Resolved]
